FAERS Safety Report 7827436-0 (Version None)
Quarter: 2011Q4

REPORT INFORMATION
  Report Type: 
  Country: None (occurrence: None)
  Receive Date: 20111020
  Receipt Date: 20111007
  Transmission Date: 20120403
  Serious: Yes (Hospitalization)
  Sender: FDA-Public Use
  Company Number: US-BAYER-2011-003040

PATIENT
  Age: 21 Year
  Sex: Female
  Weight: 61.224 kg

DRUGS (8)
  1. YAZ [Suspect]
     Indication: CONTRACEPTION
     Dosage: UNK
     Dates: start: 20080301, end: 20090201
  2. YASMIN [Suspect]
     Indication: CONTRACEPTION
  3. LOVAZA [Concomitant]
  4. MULTI-VITAMIN [Concomitant]
  5. YAZ [Suspect]
     Indication: PREMENSTRUAL SYNDROME
  6. ZOVIA 1/35E-21 [Concomitant]
  7. AMITIZA [Concomitant]
  8. YASMIN [Suspect]
     Indication: PREMENSTRUAL SYNDROME
     Dosage: UNK
     Dates: start: 20050801, end: 20060401

REACTIONS (7)
  - DIARRHOEA [None]
  - ABDOMINAL PAIN UPPER [None]
  - PYREXIA [None]
  - CHOLECYSTITIS [None]
  - NAUSEA [None]
  - CONSTIPATION [None]
  - PAIN [None]
